FAERS Safety Report 19635020 (Version 1)
Quarter: 2021Q3

REPORT INFORMATION
  Report Type: Spontaneous
  Country: CN (occurrence: CN)
  Receive Date: 20210730
  Receipt Date: 20210730
  Transmission Date: 20211014
  Serious: Yes (Other)
  Sender: FDA-Public Use
  Company Number: CN-ABBVIE-21K-035-4011022-00

PATIENT

DRUGS (1)
  1. DEPAKINE CHRONO [Suspect]
     Active Substance: VALPROATE SODIUM
     Indication: EPILEPSY
     Dosage: 333.3/145 MG
     Route: 065

REACTIONS (8)
  - Tremor [Recovering/Resolving]
  - Hypertension [Recovering/Resolving]
  - Epilepsy [Not Recovered/Not Resolved]
  - Insomnia [Recovering/Resolving]
  - Palpitations [Recovering/Resolving]
  - Affect lability [Recovering/Resolving]
  - Product quality issue [Unknown]
  - Product residue present [Unknown]
